FAERS Safety Report 16684105 (Version 1)
Quarter: 2019Q3

REPORT INFORMATION
  Report Type: Report from Study
  Country: CA (occurrence: CA)
  Receive Date: 20190808
  Receipt Date: 20190808
  Transmission Date: 20191004
  Serious: Yes (Death)
  Sender: FDA-Public Use
  Company Number: CA-TAIHO ONCOLOGY  INC-EU-2019-02620

PATIENT
  Age: 61 Year
  Sex: Male
  Weight: 92 kg

DRUGS (1)
  1. LONSURF [Suspect]
     Active Substance: TIPIRACIL HYDROCHLORIDE\TRIFLURIDINE
     Indication: COLORECTAL CANCER METASTATIC
     Dosage: CYCLE 1 ENDED IN APRIL 2019.
     Route: 048
     Dates: start: 201904

REACTIONS (1)
  - Death [Fatal]

NARRATIVE: CASE EVENT DATE: 20190424
